FAERS Safety Report 21315286 (Version 1)
Quarter: 2022Q3

REPORT INFORMATION
  Report Type: Spontaneous
  Country: US (occurrence: None)
  Receive Date: 20220909
  Receipt Date: 20220909
  Transmission Date: 20221027
  Serious: No
  Sender: FDA-Public Use
  Company Number: US-ARIS GLOBAL-202111-2065

PATIENT
  Sex: Male

DRUGS (5)
  1. OXERVATE [Suspect]
     Active Substance: CENEGERMIN-BKBJ
     Indication: Neurotrophic keratopathy
     Route: 047
     Dates: start: 20211102
  2. OFLOXACIN [Concomitant]
     Active Substance: OFLOXACIN
  3. SIMVASTATIN [Concomitant]
     Active Substance: SIMVASTATIN
  4. PRED FORTE [Concomitant]
     Active Substance: PREDNISOLONE ACETATE
  5. PREDNISONE [Concomitant]
     Active Substance: PREDNISONE

REACTIONS (2)
  - Off label use [Unknown]
  - Eye pain [Not Recovered/Not Resolved]
